FAERS Safety Report 6346567-8 (Version None)
Quarter: 2009Q3

REPORT INFORMATION
  Report Type: 
  Country: None (occurrence: None)
  Receive Date: 20090909
  Receipt Date: 20090831
  Transmission Date: 20100115
  Serious: Yes (Hospitalization, Other)
  Sender: FDA-Public Use
  Company Number: US-ELI_LILLY_AND_COMPANY-US200909000275

PATIENT
  Age: 51 Year
  Sex: Female
  Weight: 58.2 kg

DRUGS (10)
  1. CYMBALTA [Suspect]
  2. ACYCLOVIR [Concomitant]
  3. CIPROFLAXACIN [Concomitant]
  4. COMPAZINE [Concomitant]
  5. DILAUDID [Concomitant]
  6. DIPHENHYDRAMINE HCL [Concomitant]
  7. HYDROCODONE [Concomitant]
  8. LEVOFLOXACIN [Concomitant]
  9. MODAFINIL [Concomitant]
  10. TIZANIDINE HCL [Concomitant]

REACTIONS (17)
  - ALOPECIA [None]
  - BACTERAEMIA [None]
  - CYSTITIS [None]
  - DECREASED APPETITE [None]
  - HAEMATOCRIT DECREASED [None]
  - HAEMOGLOBIN DECREASED [None]
  - INSOMNIA [None]
  - LYMPHOPENIA [None]
  - MANTLE CELL LYMPHOMA [None]
  - NEUTROPHIL COUNT DECREASED [None]
  - OPPORTUNISTIC INFECTION [None]
  - ORAL PAIN [None]
  - PROTEINURIA [None]
  - RED BLOOD CELL COUNT DECREASED [None]
  - STOMATITIS [None]
  - TOOTH INFECTION [None]
  - WEIGHT DECREASED [None]
